FAERS Safety Report 22963135 (Version 2)
Quarter: 2024Q1

REPORT INFORMATION
  Report Type: Spontaneous
  Country: FR (occurrence: FR)
  Receive Date: 20230920
  Receipt Date: 20240329
  Transmission Date: 20240409
  Serious: Yes (Death, Other)
  Sender: FDA-Public Use
  Company Number: FR-AMGEN-FRASP2023157410

PATIENT
  Sex: Female

DRUGS (10)
  1. DEXAMETHASONE [Suspect]
     Active Substance: DEXAMETHASONE
     Indication: Neutrophilia
     Route: 065
  2. DEXAMETHASONE [Suspect]
     Active Substance: DEXAMETHASONE
     Indication: Hypergammaglobulinaemia benign monoclonal
  3. DARATUMUMAB [Suspect]
     Active Substance: DARATUMUMAB
     Indication: Neutrophilia
     Route: 065
  4. DARATUMUMAB [Suspect]
     Active Substance: DARATUMUMAB
     Indication: Hypergammaglobulinaemia benign monoclonal
  5. CARFILZOMIB [Suspect]
     Active Substance: CARFILZOMIB
     Indication: Neutrophilia
     Route: 065
  6. CARFILZOMIB [Suspect]
     Active Substance: CARFILZOMIB
     Indication: Hypergammaglobulinaemia benign monoclonal
  7. CYCLOPHOSPHAMIDE [Suspect]
     Active Substance: CYCLOPHOSPHAMIDE
     Indication: Neutrophilia
     Route: 065
  8. CYCLOPHOSPHAMIDE [Suspect]
     Active Substance: CYCLOPHOSPHAMIDE
     Indication: Hypergammaglobulinaemia benign monoclonal
  9. AZACITIDINE [Suspect]
     Active Substance: AZACITIDINE
     Indication: Neutrophilia
     Route: 065
  10. AZACITIDINE [Suspect]
     Active Substance: AZACITIDINE
     Indication: Hypergammaglobulinaemia benign monoclonal

REACTIONS (3)
  - Acute myeloid leukaemia [Fatal]
  - Thrombocytopenia [Unknown]
  - Therapeutic product effect decreased [Unknown]
